FAERS Safety Report 4376166-9 (Version None)
Quarter: 2004Q2

REPORT INFORMATION
  Report Type: 
  Country: None (occurrence: None)
  Receive Date: 20040607
  Receipt Date: 20040524
  Transmission Date: 20050107
  Serious: Yes (Life-Threatening, Hospitalization)
  Sender: FDA-Public Use
  Company Number: 04P-167-0262352-00

PATIENT
  Age: 40 Year
  Sex: Male
  Weight: 138 kg

DRUGS (5)
  1. MERIDIA [Suspect]
     Indication: OBESITY
     Dosage: 15 MG, 1 IN 1 D, PER ORAL
     Route: 048
     Dates: start: 20040101, end: 20040511
  2. GABAPENTIN [Concomitant]
  3. OXYCODONE HCL [Concomitant]
  4. ROFECOXIB [Concomitant]
  5. ZOPICLONE [Concomitant]

REACTIONS (2)
  - PULMONARY EMBOLISM [None]
  - UPPER RESPIRATORY TRACT INFECTION [None]
